FAERS Safety Report 11914254 (Version 1)
Quarter: 2016Q1

REPORT INFORMATION
  Report Type: Spontaneous
  Country: US (occurrence: US)
  Receive Date: 20160113
  Receipt Date: 20160113
  Transmission Date: 20160526
  Serious: Yes (Other)
  Sender: FDA-Public Use
  Company Number: US-BAYER-2016-004977

PATIENT
  Age: 54 Year
  Sex: Male
  Weight: 65.76 kg

DRUGS (4)
  1. BAYER LOW DOSE [Suspect]
     Active Substance: ASPIRIN
     Indication: BACK PAIN
     Dosage: 1 DF, QD
     Route: 048
     Dates: end: 20160107
  2. BAYER LOW DOSE [Suspect]
     Active Substance: ASPIRIN
     Indication: NECK PAIN
  3. BAYER LOW DOSE [Suspect]
     Active Substance: ASPIRIN
     Indication: BACK PAIN
     Dosage: 1 DF, QD
     Route: 048
  4. BAYER LOW DOSE [Suspect]
     Active Substance: ASPIRIN
     Indication: NECK PAIN

REACTIONS (2)
  - Deafness unilateral [None]
  - Tinnitus [Not Recovered/Not Resolved]
